FAERS Safety Report 9515101 (Version 1)
Quarter: 2013Q1

REPORT INFORMATION
  Report Type: Spontaneous
  Country: US (occurrence: None)
  Receive Date: 20130305
  Receipt Date: 20130305
  Transmission Date: 20140127
  Serious: Yes (Other)
  Sender: FDA-Public Use
  Company Number: 163-21880-12103602

PATIENT
  Age: 67 Year
  Sex: Female
  Weight: 61.69 kg

DRUGS (6)
  1. REVLIMID [Suspect]
     Indication: MYELODYSPLASTIC SYNDROME
     Dosage: 10 MG, 21 IN 28 D, PO
     Route: 048
     Dates: start: 20120914, end: 20121018
  2. ASPIRIN (ACETYLSALICYLIC ACID) (UNKNOWN)? [Concomitant]
  3. HYDROXYZINE (HYDROXYZINE) (UNKNOWN)? [Concomitant]
  4. HYDROCODONE/APAP (VICODIN) (UNKNOWN)? [Concomitant]
  5. ONDANSETRON (ONDANSETRON) (UNKNOWN) [Concomitant]
  6. VITAMIN B12 (CYANOCOBALAMIN) (UNKNOWN) [Concomitant]

REACTIONS (1)
  - Pancytopenia [None]
